FAERS Safety Report 9568231 (Version 2)
Quarter: 2013Q3

REPORT INFORMATION
  Report Type: Spontaneous
  Country: US (occurrence: US)
  Receive Date: 20130930
  Receipt Date: 20130930
  Transmission Date: 20140515
  Serious: No
  Sender: FDA-Public Use
  Company Number: US-AMGEN-USASP2013045896

PATIENT
  Age: 28 Year
  Sex: Male
  Weight: 56.69 kg

DRUGS (3)
  1. ENBREL [Suspect]
     Indication: PSORIASIS
     Dosage: UNK UNK, 2 TIMES/WK
     Route: 030
     Dates: start: 2009, end: 20111201
  2. CLOBETASOL [Concomitant]
     Dosage: UNK
  3. DOVONEX [Concomitant]
     Dosage: UNK

REACTIONS (2)
  - Drug ineffective [Unknown]
  - Psoriasis [Unknown]
